FAERS Safety Report 7234827-8 (Version None)
Quarter: 2011Q1

REPORT INFORMATION
  Report Type: 
  Country: None (occurrence: None)
  Receive Date: 20110114
  Receipt Date: 20110114
  Transmission Date: 20110831
  Serious: No
  Sender: FDA-Public Use
  Company Number: None

PATIENT
  Age: 76 Year
  Sex: Male
  Weight: 113.3993 kg

DRUGS (1)
  1. SIMVASTATIN [Suspect]
     Indication: BLOOD CHOLESTEROL
     Dosage: 40 MG DAILY PO
     Route: 048
     Dates: start: 20100101, end: 20101116

REACTIONS (6)
  - PAIN IN EXTREMITY [None]
  - MUSCULOSKELETAL PAIN [None]
  - DYSSTASIA [None]
  - BACK PAIN [None]
  - GAIT DISTURBANCE [None]
  - PRODUCT SUBSTITUTION ISSUE [None]
